FAERS Safety Report 6762559-9 (Version None)
Quarter: 2010Q2

REPORT INFORMATION
  Report Type: 
  Country: None (occurrence: None)
  Receive Date: 20100609
  Receipt Date: 20100528
  Transmission Date: 20101027
  Serious: Yes (Other)
  Sender: FDA-Public Use
  Company Number: JP-PFIZER INC-2010067589

PATIENT
  Age: 69 Year
  Sex: Male

DRUGS (1)
  1. SULPERAZON [Suspect]

REACTIONS (1)
  - WHITE BLOOD CELL COUNT DECREASED [None]
